FAERS Safety Report 23868099 (Version 2)
Quarter: 2024Q2

REPORT INFORMATION
  Report Type: Spontaneous
  Country: US (occurrence: US)
  Receive Date: 20240517
  Receipt Date: 20240608
  Transmission Date: 20240717
  Serious: No
  Sender: FDA-Public Use
  Company Number: US-JNJFOC-20240546000

PATIENT
  Age: 6 Decade
  Sex: Female

DRUGS (1)
  1. MENS ROGAINE EXTRA STRENGTH [Suspect]
     Active Substance: MINOXIDIL
     Indication: Alopecia
     Dosage: 3 SQUIRT
     Route: 061

REACTIONS (5)
  - Off label use [Unknown]
  - Suspected counterfeit product [Unknown]
  - Product container issue [Unknown]
  - Product packaging issue [Unknown]
  - Poor quality product administered [Unknown]
